FAERS Safety Report 9676163 (Version 1)
Quarter: 2013Q4

REPORT INFORMATION
  Report Type: Spontaneous
  Country: US (occurrence: US)
  Receive Date: 20131107
  Receipt Date: 20131107
  Transmission Date: 20140711
  Serious: Yes (Other)
  Sender: FDA-Public Use
  Company Number: US-ACTAVIS-2013-20229

PATIENT
  Age: 50 Year
  Sex: Female

DRUGS (2)
  1. PACLITAXEL (ATLLC) (PACLITAXEL) UNK, UNKUNK [Suspect]
     Indication: OVARIAN CANCER STAGE III
     Dosage: UNK,FOUR CYCLES
     Route: 065
     Dates: start: 2004
  2. CARBOPLATIN (WATSON LABORATORIES) [Suspect]
     Indication: OVARIAN CANCER STAGE III
     Dosage: UNK,FOUR CYCLES
     Route: 065
     Dates: start: 2004

REACTIONS (1)
  - Peripheral sensory neuropathy [Unknown]
